FAERS Safety Report 20965371 (Version 2)
Quarter: 2022Q3

REPORT INFORMATION
  Report Type: Spontaneous
  Country: US (occurrence: US)
  Receive Date: 20220616
  Receipt Date: 20220902
  Transmission Date: 20221027
  Serious: Yes (Other)
  Sender: FDA-Public Use
  Company Number: US-JNJFOC-20220609793

PATIENT
  Age: 36 Year
  Sex: Female

DRUGS (31)
  1. ELMIRON [Suspect]
     Active Substance: PENTOSAN POLYSULFATE SODIUM
     Indication: Cystitis interstitial
     Dosage: 200 MG, THREE TIMES A DAY
     Route: 048
     Dates: start: 199806, end: 2010
  2. ELMIRON [Suspect]
     Active Substance: PENTOSAN POLYSULFATE SODIUM
     Dosage: 200 MG, THREE TIMES A DAY
     Route: 048
     Dates: start: 20100301, end: 20100331
  3. ELMIRON [Suspect]
     Active Substance: PENTOSAN POLYSULFATE SODIUM
     Dosage: 200 MG, THREE TIMES A DAY
     Route: 048
     Dates: start: 20100423, end: 20100523
  4. ELMIRON [Suspect]
     Active Substance: PENTOSAN POLYSULFATE SODIUM
     Dosage: 200 MG, THREE TIMES A DAY
     Route: 048
     Dates: start: 20100610, end: 20100708
  5. ELMIRON [Suspect]
     Active Substance: PENTOSAN POLYSULFATE SODIUM
     Dosage: 200 MG, THREE TIMES A DAY
     Route: 048
     Dates: start: 20100802, end: 20100901
  6. ELMIRON [Suspect]
     Active Substance: PENTOSAN POLYSULFATE SODIUM
     Dosage: 200 MG, THREE TIMES A DAY
     Route: 048
     Dates: start: 20100926, end: 20101025
  7. ELMIRON [Suspect]
     Active Substance: PENTOSAN POLYSULFATE SODIUM
     Dosage: 200 MG, THREE TIMES A DAY
     Route: 048
     Dates: start: 20101113, end: 20101214
  8. ELMIRON [Suspect]
     Active Substance: PENTOSAN POLYSULFATE SODIUM
     Dosage: 200 MG, THREE TIMES A DAY
     Route: 048
     Dates: start: 20101231, end: 20110130
  9. ELMIRON [Suspect]
     Active Substance: PENTOSAN POLYSULFATE SODIUM
     Dosage: 200 MG, THREE TIMES A DAY
     Route: 048
     Dates: start: 20110227, end: 20110330
  10. ELMIRON [Suspect]
     Active Substance: PENTOSAN POLYSULFATE SODIUM
     Dosage: 200 MG, THREE TIMES A DAY
     Route: 048
     Dates: start: 20110407, end: 20110507
  11. ELMIRON [Suspect]
     Active Substance: PENTOSAN POLYSULFATE SODIUM
     Dosage: 200 MG, THREE TIMES A DAY
     Route: 048
     Dates: start: 20110520, end: 20110621
  12. ELMIRON [Suspect]
     Active Substance: PENTOSAN POLYSULFATE SODIUM
     Dosage: 200 MG, THREE TIMES A DAY
     Route: 048
     Dates: start: 20120216, end: 20120317
  13. ELMIRON [Suspect]
     Active Substance: PENTOSAN POLYSULFATE SODIUM
     Dosage: 200 MG, THREE TIMES A DAY
     Route: 048
     Dates: start: 20130912, end: 20131014
  14. ELMIRON [Suspect]
     Active Substance: PENTOSAN POLYSULFATE SODIUM
     Dosage: 200 MG, THREE TIMES A DAY
     Route: 048
     Dates: start: 20141101, end: 20141201
  15. ELMIRON [Suspect]
     Active Substance: PENTOSAN POLYSULFATE SODIUM
     Dosage: 200 MG, THREE TIMES A DAY
     Route: 048
     Dates: start: 20151130, end: 20160330
  16. ELMIRON [Suspect]
     Active Substance: PENTOSAN POLYSULFATE SODIUM
     Dosage: 200 MG, THREE TIMES A DAY
     Route: 048
     Dates: start: 20191106, end: 20191207
  17. ELMIRON [Suspect]
     Active Substance: PENTOSAN POLYSULFATE SODIUM
     Route: 048
     Dates: end: 2020
  18. PROMETHAZINE HYDROCHLORIDE [Concomitant]
     Active Substance: PROMETHAZINE HYDROCHLORIDE
     Indication: Nausea
     Dates: start: 201311, end: 201411
  19. CLONAZEPAM [Concomitant]
     Active Substance: CLONAZEPAM
     Indication: Anxiety
     Dates: start: 201311, end: 201802
  20. CLONAZEPAM [Concomitant]
     Active Substance: CLONAZEPAM
     Dates: end: 201911
  21. ESTRADIOL CYPIONATE [Concomitant]
     Active Substance: ESTRADIOL CYPIONATE
     Indication: Contraception
     Dates: start: 201310, end: 201401
  22. ESTRADIOL CYPIONATE [Concomitant]
     Active Substance: ESTRADIOL CYPIONATE
     Dates: start: 201405, end: 201901
  23. ESTRADIOL CYPIONATE [Concomitant]
     Active Substance: ESTRADIOL CYPIONATE
     Dates: start: 201909, end: 201912
  24. ESTRADIOL CYPIONATE [Concomitant]
     Active Substance: ESTRADIOL CYPIONATE
     Dates: start: 202101, end: 202201
  25. ESTRACE [Concomitant]
     Active Substance: ESTRADIOL
     Indication: Hormone replacement therapy
     Dates: start: 201405, end: 201406
  26. ESTRACE [Concomitant]
     Active Substance: ESTRADIOL
     Dates: start: 201407, end: 201502
  27. ESTRACE [Concomitant]
     Active Substance: ESTRADIOL
     Dates: start: 201511, end: 201603
  28. ESTRACE [Concomitant]
     Active Substance: ESTRADIOL
     Dates: start: 201606, end: 201609
  29. ESTRACE [Concomitant]
     Active Substance: ESTRADIOL
     Dates: start: 201712, end: 201802
  30. GABAPENTIN [Concomitant]
     Active Substance: GABAPENTIN
     Indication: Neuropathy peripheral
     Dates: start: 201311, end: 202001
  31. ZOLPIDEM TARTRATE [Concomitant]
     Active Substance: ZOLPIDEM TARTRATE
     Indication: Sleep disorder
     Dates: start: 201311, end: 201802

REACTIONS (3)
  - Dry eye [Unknown]
  - Toxicity to various agents [Unknown]
  - Off label use [Unknown]

NARRATIVE: CASE EVENT DATE: 19980601
